FAERS Safety Report 25569178 (Version 1)
Quarter: 2025Q3

REPORT INFORMATION
  Report Type: Other
  Country: US (occurrence: US)
  Receive Date: 20250716
  Receipt Date: 20250716
  Transmission Date: 20251021
  Serious: Yes (Other)
  Sender: FAGRON COMPOUNDING SERVICES D/B/A FAGRON STERILE SERVICES, WICHITA, KS
  Company Number: US-Fagron Sterile Services-2180630

PATIENT
  Sex: Male
  Weight: 76.5 kg

DRUGS (1)
  1. ROCURONIUM BROMIDE [Suspect]
     Active Substance: ROCURONIUM BROMIDE
     Indication: Hernia repair

REACTIONS (1)
  - Drug ineffective [Unknown]
